FAERS Safety Report 7062249-1 (Version None)
Quarter: 2010Q4

REPORT INFORMATION
  Report Type: 
  Country: None (occurrence: None)
  Receive Date: 20101026
  Receipt Date: 20101025
  Transmission Date: 20110411
  Serious: Yes (Hospitalization, Other)
  Sender: FDA-Public Use
  Company Number: US-ROXANE LABORATORIES, INC.-2010-RO-01417RO

PATIENT
  Sex: Female

DRUGS (16)
  1. DEXAMETHASONE [Suspect]
     Indication: ARTHRALGIA
     Dates: start: 20100805
  2. PACLITAXEL [Suspect]
     Indication: BREAST CANCER
     Route: 042
     Dates: start: 20100823, end: 20101005
  3. PROVENTIL [Concomitant]
     Dates: start: 20000101
  4. MAGNESIUM [Concomitant]
     Dates: start: 20100928
  5. MELATONIN [Concomitant]
     Dates: start: 20080101
  6. ACETAMINOPHEN [Concomitant]
     Dates: start: 20100622
  7. PRILOSEC [Concomitant]
     Dates: start: 20100611
  8. ADVAIR DISKUS 100/50 [Concomitant]
     Dates: start: 20050101
  9. SYNTHROID [Concomitant]
     Dates: start: 20020201
  10. LOTREL [Concomitant]
     Dates: start: 20050601
  11. SIMCOR [Concomitant]
     Dates: start: 20100612
  12. MIRAPEX [Concomitant]
     Dates: start: 20080101
  13. ATIVAN [Concomitant]
     Dates: start: 20100810
  14. ASPIRIN [Concomitant]
     Dates: start: 20000101
  15. ZOFRAN [Concomitant]
     Dates: start: 20100602
  16. NAPROXEN [Concomitant]
     Dates: start: 20080101

REACTIONS (3)
  - HYPOTENSION [None]
  - HYPOXIA [None]
  - OBSTRUCTIVE AIRWAYS DISORDER [None]
